FAERS Safety Report 9416087 (Version 1)
Quarter: 2013Q3

REPORT INFORMATION
  Report Type: Spontaneous
  Country: US (occurrence: None)
  Receive Date: 20130723
  Receipt Date: 20130723
  Transmission Date: 20140515
  Serious: Yes (Hospitalization)
  Sender: FDA-Public Use
  Company Number: None

PATIENT
  Age: 59 Year
  Sex: Female

DRUGS (1)
  1. BIO DMN BOAT [Suspect]
     Dates: start: 20121217

REACTIONS (4)
  - Wound drainage [None]
  - Purulence [None]
  - Necrosis [None]
  - Post procedural complication [None]
